FAERS Safety Report 9231261 (Version 1)
Quarter: 2013Q2

REPORT INFORMATION
  Report Type: Report from Study
  Country: US (occurrence: US)
  Receive Date: 20130415
  Receipt Date: 20130415
  Transmission Date: 20140414
  Serious: Yes (Other)
  Sender: FDA-Public Use
  Company Number: US-ABBOTT-13P-163-1073497-00

PATIENT
  Age: 54 Year
  Sex: Female

DRUGS (9)
  1. HUMIRA [Suspect]
     Indication: RHEUMATOID ARTHRITIS
     Dates: start: 201206
  2. METHOTREXATE [Concomitant]
     Indication: RHEUMATOID ARTHRITIS
     Dosage: 2.5 MG X 8 PILLS WEEKLY
  3. METOPROLOL [Concomitant]
     Indication: BLOOD PRESSURE
     Dosage: 25 MG DAILY
  4. METOPROLOL [Concomitant]
     Indication: MIGRAINE
  5. POTASSIUM [Concomitant]
     Indication: MINERAL SUPPLEMENTATION
     Dosage: 10 MEQ DAILY
  6. HYDROCHLOROTHIAZIDE [Concomitant]
     Indication: BLOOD PRESSURE
     Dosage: 25 MG DAILY
  7. LIPITOR [Concomitant]
     Indication: BLOOD CHOLESTEROL
     Dosage: 10 MG DAILY
  8. ASA [Concomitant]
     Indication: PROPHYLAXIS
     Dosage: 81 MG DAILY
  9. FOLIC ACID [Concomitant]
     Indication: VITAMIN SUPPLEMENTATION
     Dosage: DAILY

REACTIONS (3)
  - Varicose vein [Recovered/Resolved]
  - Swelling [Recovered/Resolved]
  - Injection site bruising [Not Recovered/Not Resolved]
